FAERS Safety Report 7369759-8 (Version None)
Quarter: 2011Q1

REPORT INFORMATION
  Report Type: 
  Country: None (occurrence: None)
  Receive Date: 20110323
  Receipt Date: 20110221
  Transmission Date: 20110831
  Serious: Yes (Death, Life-Threatening, Hospitalization, Other)
  Sender: FDA-Public Use
  Company Number: JP-BAYER-201014095BYL

PATIENT
  Sex: Male
  Weight: 76 kg

DRUGS (7)
  1. NEXAVAR [Suspect]
     Indication: HEPATIC NEOPLASM MALIGNANT
     Dosage: 400 MG, BID
     Route: 048
     Dates: start: 20100705, end: 20100716
  2. URSO 250 [Concomitant]
     Dosage: 600 MG (DAILY DOSE), , ORAL
     Route: 048
  3. MYSLEE [Concomitant]
     Dosage: 5 MG (DAILY DOSE), , ORAL
     Route: 048
  4. PROTECADIN [Concomitant]
     Dosage: SINCE BEFORE THE ADMINISTRATION OF NEXAVAR
     Route: 048
  5. LIVACT [Concomitant]
     Dosage: SINCE BEFORE THE ADMINISTRATION OF NEXAVAR
     Route: 048
  6. NEXAVAR [Suspect]
     Dosage: 400 MG (DAILY DOSE), , ORAL
     Route: 048
     Dates: start: 20100720, end: 20100806
  7. LOXOPROFEN [Concomitant]
     Dosage: SINCE BEFORE THE ADMINISTRATION OF NEXAVAR
     Route: 048

REACTIONS (13)
  - BLOOD SODIUM DECREASED [None]
  - WHITE BLOOD CELL COUNT INCREASED [None]
  - BLOOD POTASSIUM INCREASED [None]
  - PROTHROMBIN LEVEL DECREASED [None]
  - HAEMOGLOBIN DECREASED [None]
  - ASCITES [None]
  - SCROTAL ULCER [None]
  - BLOOD BILIRUBIN INCREASED [None]
  - HEPATIC NEOPLASM MALIGNANT [None]
  - PALMAR-PLANTAR ERYTHRODYSAESTHESIA SYNDROME [None]
  - HEPATIC ENCEPHALOPATHY [None]
  - RED BLOOD CELL COUNT DECREASED [None]
  - NEUTROPHIL COUNT INCREASED [None]
